FAERS Safety Report 10094229 (Version 1)
Quarter: 2014Q2

REPORT INFORMATION
  Report Type: Spontaneous
  Country: GB (occurrence: GB)
  Receive Date: 20140422
  Receipt Date: 20140422
  Transmission Date: 20141212
  Serious: Yes (Life-Threatening, Other)
  Sender: FDA-Public Use
  Company Number: GB-JNJFOC-20140412738

PATIENT
  Age: 50 Year
  Sex: Male
  Weight: 90.7 kg

DRUGS (6)
  1. LOPERAMIDE [Suspect]
     Route: 065
  2. LOPERAMIDE [Suspect]
     Indication: IRRITABLE BOWEL SYNDROME
     Dosage: 2.0
     Route: 065
     Dates: start: 201312, end: 201312
  3. DOMPERIDONE [Concomitant]
     Indication: ABDOMINAL DISCOMFORT
     Dosage: 2 WITH MEALS
     Route: 048
     Dates: start: 2010
  4. PROPRANOLOL [Concomitant]
     Indication: ANXIETY
     Dosage: 80
     Route: 065
     Dates: start: 2010
  5. LANSOPRAZOLE [Concomitant]
     Indication: HIATUS HERNIA
     Dosage: 30;
     Route: 065
     Dates: start: 2010
  6. MIRTAZAPINE [Concomitant]
     Indication: ANXIETY
     Dosage: 30.0; ONE AT NIGHT
     Route: 065
     Dates: start: 2010

REACTIONS (1)
  - Anxiety [Recovered/Resolved]
